FAERS Safety Report 9225820 (Version 1)
Quarter: 2013Q1

REPORT INFORMATION
  Report Type: Spontaneous
  Country: US (occurrence: None)
  Receive Date: 20120912
  Receipt Date: 20120912
  Transmission Date: 20140127
  Serious: No
  Sender: FDA-Public Use
  Company Number: 2012SP033699

PATIENT
  Age: 53 Year
  Sex: Female

DRUGS (5)
  1. SAPHRIS [Suspect]
     Indication: BIPOLAR DISORDER
     Route: 060
     Dates: end: 20120617
  2. DIVALPROEX [Concomitant]
  3. FLUTICASONE [Concomitant]
  4. SYMBICORT [Concomitant]
  5. VENTOLIN HFA [Concomitant]

REACTIONS (2)
  - Weight increased [None]
  - Tremor [None]
